FAERS Safety Report 20709122 (Version 1)
Quarter: 2022Q2

REPORT INFORMATION
  Report Type: Report from Study
  Country: FR (occurrence: FR)
  Receive Date: 20220414
  Receipt Date: 20220414
  Transmission Date: 20220720
  Serious: Yes (Hospitalization, Other)
  Sender: FDA-Public Use
  Company Number: FR-MYLANLABS-2022M1026769

PATIENT
  Age: 18 Year
  Sex: Female

DRUGS (6)
  1. BUSULFAN [Suspect]
     Active Substance: BUSULFAN
     Indication: Ewing^s sarcoma
     Dosage: 0.8 MILLIGRAM/KILOGRAM, QID
     Route: 065
  2. DOXORUBICIN [Suspect]
     Active Substance: DOXORUBICIN
     Indication: Ewing^s sarcoma
     Dosage: UNK
     Route: 065
  3. VINCRISTINE [Concomitant]
     Active Substance: VINCRISTINE
     Indication: Ewing^s sarcoma
     Dosage: UNK
     Route: 065
  4. IFOSFAMIDE [Concomitant]
     Active Substance: IFOSFAMIDE
     Indication: Ewing^s sarcoma
     Dosage: UNK
     Route: 065
  5. ETOPOSIDE [Concomitant]
     Active Substance: ETOPOSIDE
     Indication: Ewing^s sarcoma
     Dosage: UNK
     Route: 065
  6. DACTINOMYCIN [Concomitant]
     Active Substance: DACTINOMYCIN
     Indication: Ewing^s sarcoma
     Dosage: UNK
     Route: 065

REACTIONS (4)
  - Pulmonary arterial hypertension [Recovering/Resolving]
  - Obliterative bronchiolitis [Unknown]
  - Bronchiectasis [Unknown]
  - Cardiotoxicity [Unknown]
